FAERS Safety Report 4739571-4 (Version None)
Quarter: 2005Q3

REPORT INFORMATION
  Report Type: 
  Country: None (occurrence: None)
  Receive Date: 20050810
  Receipt Date: 20050405
  Transmission Date: 20060218
  Serious: Yes (Hospitalization)
  Sender: FDA-Public Use
  Company Number: US-GLAXOSMITHKLINE-A0552790A

PATIENT
  Age: 44 Year
  Sex: Male

DRUGS (5)
  1. PAROXETINE HCL [Suspect]
     Dosage: 40MG PER DAY
     Route: 048
     Dates: start: 20041001
  2. ATIVAN [Concomitant]
  3. CATAPRES-TTS-1 [Concomitant]
  4. ACIPHEX [Concomitant]
  5. TOPROL-XL [Concomitant]

REACTIONS (5)
  - DYSKINESIA [None]
  - FATIGUE [None]
  - HEADACHE [None]
  - HYPERTENSION [None]
  - TREMOR [None]
